FAERS Safety Report 9014669 (Version 3)
Quarter: 2013Q1

REPORT INFORMATION
  Report Type: Spontaneous
  Country: FR (occurrence: FR)
  Receive Date: 20130115
  Receipt Date: 20130131
  Transmission Date: 20140127
  Serious: Yes (Hospitalization)
  Sender: FDA-Public Use
  Company Number: FR-PFIZER INC-2013014700

PATIENT
  Age: 89 Year
  Sex: Male

DRUGS (15)
  1. EUPANTOL [Suspect]
     Dosage: 40 MG, 1X/DAY
     Route: 048
     Dates: start: 20121114, end: 20121120
  2. TAHOR [Suspect]
     Dosage: UNK
     Route: 048
     Dates: end: 20121117
  3. NORSET [Suspect]
     Dosage: UNK
     Route: 048
     Dates: start: 201210, end: 20121115
  4. MIANSERIN [Suspect]
     Dosage: UNK
     Route: 048
     Dates: start: 20121119, end: 20121120
  5. ZYLORIC [Suspect]
     Dosage: UNK
     Route: 048
     Dates: end: 20121117
  6. ZYPREXA [Suspect]
     Dosage: 5 MG, UNK
     Route: 048
     Dates: start: 20121117, end: 20121120
  7. ZYPREXA [Suspect]
     Dosage: 2.5 MG, UNK
     Route: 048
     Dates: start: 20121121
  8. SEROPRAM [Concomitant]
     Dosage: 2 MG, UNK
     Dates: start: 20121117
  9. LOVENOX [Concomitant]
     Dosage: UNK
  10. HYDREA [Concomitant]
     Dosage: 2 DF, 6 IN 1 WK
     Route: 048
     Dates: end: 20121121
  11. RAMIPRIL [Concomitant]
     Dosage: UNK
  12. XANAX [Concomitant]
     Dosage: UNK
  13. MOVICOL [Concomitant]
  14. VITABACT [Concomitant]
     Dosage: UNK
  15. KARDEGIC [Concomitant]
     Dosage: UNK
     Dates: end: 20121120

REACTIONS (1)
  - Neutropenia [Recovered/Resolved]
